FAERS Safety Report 15092798 (Version 1)
Quarter: 2018Q2

REPORT INFORMATION
  Report Type: Spontaneous
  Country: US (occurrence: US)
  Receive Date: 20180608
  Receipt Date: 20180608
  Transmission Date: 20180711
  Serious: Yes (Other)
  Sender: FDA-Public Use
  Company Number: None

PATIENT
  Age: 55 Year
  Sex: Female
  Weight: 48.6 kg

DRUGS (9)
  1. ALPRAZOLAM. [Concomitant]
     Active Substance: ALPRAZOLAM
  2. SIMETHICONE (DIMETHICONE) [Concomitant]
     Active Substance: DIMETHICONE
  3. GLYCERIN SUPPOSITORY [Concomitant]
     Active Substance: GLYCERIN
  4. ACETAMINOPHEN. [Concomitant]
     Active Substance: ACETAMINOPHEN
  5. ONDANSETRON ODT [Suspect]
     Active Substance: ONDANSETRON
     Indication: NAUSEA
     Dosage: ?          QUANTITY:1 TABLET(S);?
     Route: 060
     Dates: start: 20180601, end: 20180607
  6. TRAZODONE [Concomitant]
     Active Substance: TRAZODONE HYDROCHLORIDE
  7. ATORVASTATIN [Concomitant]
     Active Substance: ATORVASTATIN
  8. TRAMADOL. [Concomitant]
     Active Substance: TRAMADOL
  9. IBUPROFEN. [Concomitant]
     Active Substance: IBUPROFEN

REACTIONS (1)
  - Ataxia [None]

NARRATIVE: CASE EVENT DATE: 20180601
